FAERS Safety Report 13805164 (Version 1)
Quarter: 2017Q3

REPORT INFORMATION
  Report Type: Spontaneous
  Country: US (occurrence: US)
  Receive Date: 20170728
  Receipt Date: 20170728
  Transmission Date: 20171127
  Serious: No
  Sender: FDA-Public Use
  Company Number: US-PFIZER INC-2017327149

PATIENT
  Age: 69 Year
  Sex: Female
  Weight: 66 kg

DRUGS (1)
  1. LIPITOR [Suspect]
     Active Substance: ATORVASTATIN CALCIUM
     Dosage: UNK

REACTIONS (5)
  - Feeling abnormal [Unknown]
  - Dyspepsia [Unknown]
  - Gastric disorder [Unknown]
  - Throat irritation [Unknown]
  - Skin irritation [Unknown]
